FAERS Safety Report 7030476-5 (Version None)
Quarter: 2010Q4

REPORT INFORMATION
  Report Type: 
  Country: None (occurrence: None)
  Receive Date: 20101001
  Receipt Date: 20100913
  Transmission Date: 20110411
  Serious: Yes (Other)
  Sender: FDA-Public Use
  Company Number: 2010SP049399

PATIENT
  Age: 72 Year
  Sex: Female

DRUGS (4)
  1. DULERA TABLET [Suspect]
     Indication: ASTHMA
     Dosage: 2 DF BID INH
     Route: 055
     Dates: start: 20100911, end: 20100912
  2. VITAMINS [Concomitant]
  3. BLOOD PRESSURE [Concomitant]
  4. MEDICATION [Concomitant]

REACTIONS (1)
  - APHONIA [None]
